FAERS Safety Report 9192562 (Version 1)
Quarter: 2013Q1

REPORT INFORMATION
  Report Type: Spontaneous
  Country: IN (occurrence: None)
  Receive Date: 20130325
  Receipt Date: 20130325
  Transmission Date: 20140127
  Serious: Yes (Death, Other)
  Sender: FDA-Public Use
  Company Number: FK201300912

PATIENT
  Sex: Male

DRUGS (2)
  1. PACLITAXEL [Suspect]
     Indication: PENILE CANCER
     Dosage: 1 IN 3 HRS
  2. PLATINUM-BASED CHEMOTHERAPY [Suspect]

REACTIONS (2)
  - Diarrhoea [None]
  - Neutropenia [None]
